FAERS Safety Report 7291518-5 (Version None)
Quarter: 2011Q1

REPORT INFORMATION
  Report Type: 
  Country: None (occurrence: None)
  Receive Date: 20110214
  Receipt Date: 20110210
  Transmission Date: 20110831
  Serious: Yes (Hospitalization)
  Sender: FDA-Public Use
  Company Number: US-AMGEN-USASP2011008212

PATIENT
  Sex: Male
  Weight: 70.45 kg

DRUGS (2)
  1. NPLATE [Suspect]
     Dates: start: 20100309, end: 20100809
  2. NPLATE [Suspect]
     Indication: IDIOPATHIC THROMBOCYTOPENIC PURPURA
     Dosage: 71 A?G, UNK
     Dates: start: 20100309, end: 20100809

REACTIONS (3)
  - PNEUMONIA [None]
  - CARDIAC DISORDER [None]
  - WEIGHT INCREASED [None]
